FAERS Safety Report 8022080-7 (Version None)
Quarter: 2012Q1

REPORT INFORMATION
  Report Type: 
  Country: None (occurrence: None)
  Receive Date: 20120104
  Receipt Date: 20111229
  Transmission Date: 20120608
  Serious: Yes (Death)
  Sender: FDA-Public Use
  Company Number: US-CELGENEUS-163-21880-11123854

PATIENT
  Sex: Male

DRUGS (11)
  1. ARANESP [Concomitant]
     Dosage: 25 MICROGRAM
     Route: 050
  2. DEXAMETHASONE [Concomitant]
     Dosage: 4 MILLIGRAM
     Route: 048
  3. PERCOCET [Concomitant]
     Dosage: 2.5-325
     Route: 048
  4. STOOL SOFTENER [Concomitant]
     Dosage: 100-30
     Route: 048
  5. VITAMIN B-12 [Concomitant]
     Dosage: 1000 CR
     Route: 048
  6. SINEMET [Concomitant]
     Dosage: 10/100
     Route: 048
  7. REVLIMID [Suspect]
     Indication: MULTIPLE MYELOMA
     Dosage: 10 MILLIGRAM
     Route: 048
     Dates: start: 20111207
  8. MILK OF MAGNESIA TAB [Concomitant]
     Route: 065
  9. ACETAMINOPHEN [Concomitant]
     Dosage: 325 MILLIGRAM
     Route: 048
  10. AMLODIPINE [Concomitant]
     Dosage: 2.5 MILLIGRAM
     Route: 048
  11. ASPIRIN [Concomitant]
     Dosage: 81 MILLIGRAM
     Route: 048

REACTIONS (1)
  - DEATH [None]
